FAERS Safety Report 17697669 (Version 1)
Quarter: 2020Q2

REPORT INFORMATION
  Report Type: Spontaneous
  Country: US (occurrence: US)
  Receive Date: 20200422
  Receipt Date: 20200422
  Transmission Date: 20200714
  Serious: Yes (Other)
  Sender: FDA-Public Use
  Company Number: None

PATIENT
  Age: 15 Year
  Sex: Female
  Weight: 57.61 kg

DRUGS (4)
  1. LO LOESTRIN FE [Concomitant]
     Active Substance: ETHINYL ESTRADIOL\NORETHINDRONE ACETATE
  2. MONTELUKAST [Suspect]
     Active Substance: MONTELUKAST SODIUM
     Indication: ASTHMA
     Dosage: ?          QUANTITY:1 PILL;OTHER FREQUENCY:DAILY OR AS NEEDED;?
     Route: 048
     Dates: start: 20190702, end: 20200309
  3. ALBUTEROL. [Concomitant]
     Active Substance: ALBUTEROL
  4. MULTIVITAMIN [Concomitant]
     Active Substance: VITAMINS

REACTIONS (5)
  - Crying [None]
  - Anger [None]
  - Depression [None]
  - Anxiety [None]
  - Aggression [None]

NARRATIVE: CASE EVENT DATE: 20190702
